FAERS Safety Report 17737087 (Version 2)
Quarter: 2020Q3

REPORT INFORMATION
  Report Type: Spontaneous
  Country: DK (occurrence: DK)
  Receive Date: 20200502
  Receipt Date: 20200728
  Transmission Date: 20201102
  Serious: Yes (Other)
  Sender: FDA-Public Use
  Company Number: DK-BION-008675

PATIENT
  Age: 33 Year
  Sex: Female

DRUGS (1)
  1. LOPERAMIDE HYDROCHLORIDE. [Suspect]
     Active Substance: LOPERAMIDE HYDROCHLORIDE
     Dosage: LONG?TERM EXCESSIVE DAILY INTAKE, EQUIVALENT TO TEN TIMES THE MAXIMUM RECOMMENDED DOSE

REACTIONS (3)
  - Headache [Unknown]
  - Musculoskeletal stiffness [Unknown]
  - Drug abuse [Unknown]
